FAERS Safety Report 8923545 (Version 1)
Quarter: 2012Q4

REPORT INFORMATION
  Report Type: Spontaneous
  Country: US (occurrence: None)
  Receive Date: 20121115
  Receipt Date: 20121115
  Transmission Date: 20130627
  Serious: No
  Sender: FDA-Public Use
  Company Number: None

PATIENT
  Age: 18 Year
  Sex: Female

DRUGS (2)
  1. DROSPIRENONE AND ETHINYL ESTRADIOL [Suspect]
     Dates: start: 20100601, end: 20100801
  2. DROSPIRENONE AND ETHINYL ESTRADIOL [Suspect]
     Dates: start: 20101001, end: 20101110

REACTIONS (13)
  - Drug-induced liver injury [None]
  - Fatigue [None]
  - Nausea [None]
  - Decreased appetite [None]
  - Pruritus [None]
  - Chromaturia [None]
  - Aspartate aminotransferase increased [None]
  - Alanine aminotransferase increased [None]
  - Blood alkaline phosphatase increased [None]
  - Blood bilirubin increased [None]
  - Cholelithiasis [None]
  - Cholecystitis acute [None]
  - Cholecystitis chronic [None]
